FAERS Safety Report 5069782-2 (Version None)
Quarter: 2006Q3

REPORT INFORMATION
  Report Type: 
  Country: None (occurrence: None)
  Receive Date: 20060803
  Receipt Date: 20060711
  Transmission Date: 20061208
  Serious: Yes (Hospitalization)
  Sender: FDA-Public Use
  Company Number: JP-JPN-A200602576

PATIENT
  Age: 57 Year
  Sex: Female
  Weight: 60 kg

DRUGS (7)
  1. VALTREX [Suspect]
     Indication: HERPES ZOSTER
     Dosage: 1000MG THREE TIMES PER DAY
     Route: 048
     Dates: start: 20060531, end: 20060606
  2. LOXONIN [Concomitant]
     Indication: HERPES ZOSTER
     Dosage: 180MG PER DAY
     Route: 048
     Dates: start: 20060531, end: 20060606
  3. MUCOSTA [Concomitant]
     Indication: HERPES ZOSTER
     Dosage: 300MG PER DAY
     Route: 048
     Dates: start: 20060531, end: 20060606
  4. VOLTAREN [Concomitant]
     Indication: HERPES ZOSTER
     Route: 054
     Dates: start: 20060531
  5. PREMARIN [Concomitant]
     Indication: MENOPAUSAL SYMPTOMS
     Dosage: .625MG PER DAY
     Route: 048
  6. PROVERA [Concomitant]
     Indication: MENOPAUSAL SYMPTOMS
     Dosage: 2.5MG PER DAY
     Route: 048
  7. TOKI-SHIGYAKU-KA-GOSHUYU-SHOKY [Concomitant]
     Indication: MENOPAUSAL SYMPTOMS
     Route: 048

REACTIONS (2)
  - LIVER DISORDER [None]
  - MALAISE [None]
